FAERS Safety Report 9547471 (Version 1)
Quarter: 2013Q2

REPORT INFORMATION
  Report Type: Spontaneous
  Country: US (occurrence: None)
  Receive Date: 20130606
  Receipt Date: 20130606
  Transmission Date: 20140414
  Serious: Yes (Other)
  Sender: FDA-Public Use
  Company Number: 163-POMAL-13040789

PATIENT
  Age: 70 Year
  Sex: Female
  Weight: 77.11 kg

DRUGS (13)
  1. POMALYST [Suspect]
     Indication: PLASMA CELL MYELOMA
     Route: 048
     Dates: start: 20130317, end: 20130402
  2. ASA (ACETYLSALICYLIC ACID) [Concomitant]
  3. CANDESARTAN [Concomitant]
  4. CALCIUM [Concomitant]
  5. DOCUSATE [Concomitant]
  6. PROCHLORPERAZINE [Concomitant]
  7. WARFARIN [Concomitant]
  8. FENTANYL [Concomitant]
  9. LORAZEPAM [Concomitant]
  10. HYDROCODONE/APAP (VICODIN) [Concomitant]
  11. TRAMADOL [Concomitant]
  12. ATACAND (CANDESARTAN CILEXETIL) [Concomitant]
  13. BACTRIM [Concomitant]

REACTIONS (4)
  - Platelet count decreased [None]
  - Haemoglobin decreased [None]
  - Neutrophil count decreased [None]
  - White blood cell count decreased [None]
